FAERS Safety Report 20608516 (Version 1)
Quarter: 2022Q1

REPORT INFORMATION
  Report Type: Spontaneous
  Country: US (occurrence: None)
  Receive Date: 20220317
  Receipt Date: 20220317
  Transmission Date: 20220423
  Serious: Yes (Hospitalization)
  Sender: FDA-Public Use
  Company Number: None

PATIENT
  Age: 53 Year
  Sex: Female

DRUGS (1)
  1. CAPECITABINE [Suspect]
     Active Substance: CAPECITABINE
     Dosage: FREQUENCY : TWICE A DAY;?
     Route: 047
     Dates: start: 202203

REACTIONS (7)
  - Gastrointestinal haemorrhage [None]
  - Rash erythematous [None]
  - Rash [None]
  - Oral pain [None]
  - Headache [None]
  - Nausea [None]
  - Skin fissures [None]

NARRATIVE: CASE EVENT DATE: 20220301
